FAERS Safety Report 8572743-X (Version None)
Quarter: 2012Q3

REPORT INFORMATION
  Report Type: 
  Country: None (occurrence: None)
  Receive Date: 20120806
  Receipt Date: 20120801
  Transmission Date: 20120928
  Serious: Yes (Hospitalization)
  Sender: FDA-Public Use
  Company Number: IT-PFIZER INC-2012188098

PATIENT
  Age: 57 Year
  Sex: Male

DRUGS (1)
  1. XANAX [Suspect]
     Dosage: 6 TABLETS (0.25 MG)
     Route: 048
     Dates: start: 20120723, end: 20120723

REACTIONS (3)
  - INTENTIONAL OVERDOSE [None]
  - BRADYPHRENIA [None]
  - SOPOR [None]
